FAERS Safety Report 4865469-7 (Version None)
Quarter: 2005Q4

REPORT INFORMATION
  Report Type: 
  Country: None (occurrence: None)
  Receive Date: 20051223
  Receipt Date: 20051211
  Transmission Date: 20060501
  Serious: Yes (Hospitalization)
  Sender: FDA-Public Use
  Company Number: DE-ROCHE-428208

PATIENT
  Age: 33 Year
  Sex: Male

DRUGS (2)
  1. PEGASYS [Suspect]
     Route: 065
     Dates: start: 20051105
  2. COPEGUS [Suspect]
     Dosage: EVENING DOSE.
     Route: 065
     Dates: start: 20051105

REACTIONS (2)
  - CHEST DISCOMFORT [None]
  - INTERVERTEBRAL DISC PROTRUSION [None]
